FAERS Safety Report 6876810-8 (Version None)
Quarter: 2010Q3

REPORT INFORMATION
  Report Type: 
  Country: None (occurrence: None)
  Receive Date: 20100727
  Receipt Date: 20100715
  Transmission Date: 20110219
  Serious: Yes (Other)
  Sender: FDA-Public Use
  Company Number: PHHY2010AU27460

PATIENT
  Sex: Male

DRUGS (2)
  1. TASIGNA [Suspect]
     Indication: CHRONIC MYELOID LEUKAEMIA
     Dosage: 800 MG
     Route: 048
     Dates: start: 20100329
  2. STEROIDS NOS [Suspect]

REACTIONS (8)
  - DIABETES MELLITUS [None]
  - DIPLOPIA [None]
  - EYE PAIN [None]
  - MUSCLE SPASMS [None]
  - NERVE COMPRESSION [None]
  - NEURALGIA [None]
  - PAIN OF SKIN [None]
  - TEMPORAL ARTERITIS [None]
